FAERS Safety Report 12801637 (Version 3)
Quarter: 2018Q3

REPORT INFORMATION
  Report Type: Spontaneous
  Country: US (occurrence: US)
  Receive Date: 20161003
  Receipt Date: 20180827
  Transmission Date: 20181010
  Serious: Yes (Hospitalization, Other)
  Sender: FDA-Public Use
  Company Number: US-PFIZER INC-2016454971

PATIENT
  Age: 81 Year
  Sex: Male

DRUGS (7)
  1. CRESTOR [Concomitant]
     Active Substance: ROSUVASTATIN CALCIUM
  2. LASIX [Concomitant]
     Active Substance: FUROSEMIDE
  3. SAW PALMETTO [Concomitant]
     Active Substance: HERBALS\SAW PALMETTO
  4. MULTIVITAMIN [VITAMINS NOS] [Concomitant]
     Dosage: 1 DF, DAILY
  5. FOLIC ACID. [Concomitant]
     Active Substance: FOLIC ACID
  6. KLOR?CON [Concomitant]
     Active Substance: POTASSIUM CHLORIDE
  7. XELJANZ [Suspect]
     Active Substance: TOFACITINIB CITRATE
     Indication: RHEUMATOID ARTHRITIS
     Dosage: 5 MG, 2X/DAY
     Route: 048
     Dates: start: 201512

REACTIONS (3)
  - Pain [Unknown]
  - Pneumonia [Unknown]
  - Gait inability [Unknown]

NARRATIVE: CASE EVENT DATE: 201601
